FAERS Safety Report 7583417-6 (Version None)
Quarter: 2011Q2

REPORT INFORMATION
  Report Type: 
  Country: None (occurrence: None)
  Receive Date: 20110623
  Receipt Date: 20110608
  Transmission Date: 20111010
  Serious: Yes (Hospitalization)
  Sender: FDA-Public Use
  Company Number: 2011MA006932

PATIENT
  Age: 40 Year
  Sex: Male

DRUGS (5)
  1. FOSCARNET [Concomitant]
  2. MOXIFIOXACIN [Concomitant]
  3. ACYCLOVIR [Suspect]
     Indication: NECROTISING RETINITIS
     Dosage: 15 MG/KG, Q8;
  4. PREDNISOLONE [Concomitant]
  5. CYCLOPENTOLATE HCL [Concomitant]

REACTIONS (4)
  - PHOTOPHOBIA [None]
  - VITREOUS FLOATERS [None]
  - VISION BLURRED [None]
  - NEPHROPATHY TOXIC [None]
